FAERS Safety Report 23220039 (Version 1)
Quarter: 2023Q4

REPORT INFORMATION
  Report Type: Report from Study
  Country: US (occurrence: US)
  Receive Date: 20231122
  Receipt Date: 20231122
  Transmission Date: 20240110
  Serious: Yes (Other)
  Sender: FDA-Public Use
  Company Number: US-ABBVIE-5507687

PATIENT
  Sex: Female

DRUGS (1)
  1. VENCLEXTA [Suspect]
     Active Substance: VENETOCLAX
     Indication: Chronic lymphocytic leukaemia
     Dosage: STRENGTH:100MG?TAKE 4 TABLET(S) BY MOUTH EVERY DAY
     Route: 048

REACTIONS (2)
  - Renal failure [Unknown]
  - Lymphadenopathy [Unknown]
